FAERS Safety Report 9438698 (Version 2)
Quarter: 2013Q3

REPORT INFORMATION
  Report Type: Spontaneous
  Country: US (occurrence: US)
  Receive Date: 20130802
  Receipt Date: 20130815
  Transmission Date: 20140515
  Serious: Yes (Death)
  Sender: FDA-Public Use
  Company Number: CHPA2013US012250

PATIENT
  Age: 74 Year
  Sex: Female

DRUGS (1)
  1. PERDIEM OVERNIGHT RELIEF PILLS [Suspect]
     Indication: BOWEL MOVEMENT IRREGULARITY
     Dosage: 15 MG, QD
     Route: 048

REACTIONS (3)
  - Colon cancer metastatic [Fatal]
  - Incorrect drug administration duration [Unknown]
  - Drug ineffective [Unknown]
